FAERS Safety Report 21742867 (Version 1)
Quarter: 2022Q4

REPORT INFORMATION
  Report Type: Report from Study
  Country: US (occurrence: US)
  Receive Date: 20221217
  Receipt Date: 20221217
  Transmission Date: 20230113
  Serious: No
  Sender: FDA-Public Use
  Company Number: US-ABBVIE-4188843

PATIENT
  Sex: Male

DRUGS (1)
  1. SKYRIZI [Suspect]
     Active Substance: RISANKIZUMAB-RZAA
     Indication: Psoriasis
     Dosage: 150MG WEEK 0, WEEK 4 AND EVERY 12 WEEKS THEREAFTER.
     Route: 058
     Dates: start: 20211223

REACTIONS (4)
  - Dry skin [Unknown]
  - Pruritus [Unknown]
  - Malaise [Recovered/Resolved]
  - Off label use [Unknown]
